FAERS Safety Report 11208990 (Version 2)
Quarter: 2015Q3

REPORT INFORMATION
  Report Type: Spontaneous
  Country: US (occurrence: US)
  Receive Date: 20150622
  Receipt Date: 20150911
  Transmission Date: 20151125
  Serious: Yes (Hospitalization, Other)
  Sender: FDA-Public Use
  Company Number: US-DSJP-DSU-2015-119451

PATIENT

DRUGS (1)
  1. BENICAR [Suspect]
     Active Substance: OLMESARTAN MEDOXOMIL
     Indication: HYPERTENSION
     Dosage: 40 MG, QD
     Route: 048
     Dates: start: 2008, end: 20131113

REACTIONS (12)
  - Malabsorption [Unknown]
  - Acute kidney injury [Unknown]
  - Gastritis [Unknown]
  - Abdominal pain [Recovered/Resolved]
  - Small intestinal bacterial overgrowth [Unknown]
  - Urinary tract infection [Unknown]
  - Small intestinal obstruction [Unknown]
  - Dysuria [Unknown]
  - Coeliac disease [Unknown]
  - Inflammatory bowel disease [Unknown]
  - Fatigue [Not Recovered/Not Resolved]
  - Colon neoplasm [Unknown]

NARRATIVE: CASE EVENT DATE: 20131126
